FAERS Safety Report 6900323-8 (Version None)
Quarter: 2010Q3

REPORT INFORMATION
  Report Type: 
  Country: None (occurrence: None)
  Receive Date: 20100803
  Receipt Date: 20100721
  Transmission Date: 20110219
  Serious: Yes (Other)
  Sender: FDA-Public Use
  Company Number: PHHY2010CA48364

PATIENT
  Sex: Female

DRUGS (1)
  1. SANDOSTATIN [Suspect]
     Dosage: 50 MICROGRAM
     Route: 058
     Dates: start: 20100719

REACTIONS (3)
  - HEADACHE [None]
  - NON-CARDIAC CHEST PAIN [None]
  - VOMITING [None]
